FAERS Safety Report 8246606-3 (Version None)
Quarter: 2012Q1

REPORT INFORMATION
  Report Type: 
  Country: None (occurrence: None)
  Receive Date: 20120330
  Receipt Date: 20120326
  Transmission Date: 20120608
  Serious: Yes (Other)
  Sender: FDA-Public Use
  Company Number: BR-PFIZER INC-2012078392

PATIENT
  Age: 46 Year
  Sex: Male
  Weight: 55 kg

DRUGS (3)
  1. ALPRAZOLAM [Suspect]
     Indication: ANXIETY
     Dosage: 0.5 MG, 1X/DAY (ONE TABLET DAILY)
     Route: 048
     Dates: start: 20110801
  2. ATENOLOL [Concomitant]
     Dosage: ONE TABLET DAILY
     Dates: start: 20120201
  3. ATENOLOL [Concomitant]
     Indication: BLOOD PRESSURE INCREASED
     Dosage: 25 MG, UNK
     Dates: start: 20110801, end: 20120201

REACTIONS (6)
  - BURNING SENSATION [None]
  - WITHDRAWAL SYNDROME [None]
  - MUSCLE SPASMS [None]
  - PAIN [None]
  - HYPERTENSION [None]
  - THROAT IRRITATION [None]
